FAERS Safety Report 8586342 (Version 3)
Quarter: 2012Q4

REPORT INFORMATION
  Report Type: Report from Study
  Country: JP (occurrence: JP)
  Receive Date: 20120530
  Receipt Date: 20121204
  Transmission Date: 20130627
  Serious: Yes (Life-Threatening, Hospitalization, Other)
  Sender: FDA-Public Use
  Company Number: PHHY2012JP045116

PATIENT
  Age: 52 Year
  Sex: Male
  Weight: 68 kg

DRUGS (9)
  1. ALISKIREN [Suspect]
     Indication: HYPERTENSION
     Dosage: 150 mg, QD
     Route: 048
     Dates: start: 20101015, end: 20110603
  2. ALISKIREN [Suspect]
     Dosage: 150 mg, QD
     Route: 048
     Dates: start: 20110730, end: 20111225
  3. EXFORGE [Concomitant]
     Indication: HYPERTENSION
     Dosage: 1 DF, UNK
     Route: 048
     Dates: start: 20110604, end: 20110729
  4. CONIEL [Concomitant]
     Indication: HYPERTENSION
     Dosage: 8 mg, UNK
     Route: 048
     Dates: start: 20100203
  5. CONIEL [Concomitant]
     Dosage: 5 mg, UNK
     Dates: end: 20111225
  6. AMLODIN [Concomitant]
     Indication: HYPERTENSION
     Dosage: 5 mg, UNK
     Route: 048
     Dates: start: 20100327, end: 20110203
  7. AVAPRO [Concomitant]
     Indication: HYPERTENSION
     Dosage: 100 mg, UNK
     Route: 048
     Dates: start: 20110730, end: 20111225
  8. FLUITRAN [Concomitant]
     Indication: HYPERTENSION
     Dosage: 2 mg, UNK
     Route: 048
     Dates: start: 20110604, end: 20110729
  9. LIPOLA M [Concomitant]
     Indication: DYSLIPIDAEMIA
     Dosage: 5 mg, UNK
     Route: 048
     Dates: start: 20100424, end: 20111225

REACTIONS (3)
  - Cardiac failure [Recovering/Resolving]
  - Arrhythmia [Unknown]
  - Blood pressure increased [Unknown]
